FAERS Safety Report 16023544 (Version 5)
Quarter: 2019Q3

REPORT INFORMATION
  Report Type: Report from Study
  Country: GB (occurrence: GB)
  Receive Date: 20190301
  Receipt Date: 20190911
  Transmission Date: 20191004
  Serious: Yes (Hospitalization, Other)
  Sender: FDA-Public Use
  Company Number: PHHY2018GB148376

PATIENT
  Age: 73 Year
  Sex: Male

DRUGS (6)
  1. SPIRONOLACTONE. [Suspect]
     Active Substance: SPIRONOLACTONE
     Indication: BLOOD PRESSURE INCREASED
     Route: 065
  2. OLMESARTAN MEDOXOMIL. [Concomitant]
     Active Substance: OLMESARTAN MEDOXOMIL
     Indication: PRODUCT USED FOR UNKNOWN INDICATION
     Dosage: 10 MG, QD
     Route: 065
  3. OLMESARTAN MEDOXOMIL. [Concomitant]
     Active Substance: OLMESARTAN MEDOXOMIL
     Dosage: 20 MG, QD
     Route: 065
  4. MORPHINE [Suspect]
     Active Substance: MORPHINE
     Indication: PRODUCT USED FOR UNKNOWN INDICATION
     Route: 065
  5. SPIRONOLACTONE. [Suspect]
     Active Substance: SPIRONOLACTONE
     Indication: JOINT SWELLING
  6. SANDOSTATIN LAR DEPOT [Suspect]
     Active Substance: OCTREOTIDE ACETATE
     Indication: NEUROENDOCRINE TUMOUR
     Dosage: 30 MG, QMO (EVERY 4 WEEKS)
     Route: 030
     Dates: start: 20181005

REACTIONS (20)
  - Embolism [Unknown]
  - Delayed recovery from anaesthesia [Unknown]
  - Asthenia [Unknown]
  - Steatorrhoea [Unknown]
  - Dizziness [Unknown]
  - Syncope [Unknown]
  - Joint swelling [Unknown]
  - Nausea [Unknown]
  - Tricuspid valve incompetence [Unknown]
  - Gait disturbance [Unknown]
  - Liver function test increased [Recovering/Resolving]
  - Blood pressure increased [Unknown]
  - Rash [Unknown]
  - Malaise [Unknown]
  - Weight decreased [Unknown]
  - Skin mass [Unknown]
  - C-reactive protein increased [Unknown]
  - Lethargy [Unknown]
  - Flatulence [Unknown]
  - Diarrhoea [Unknown]

NARRATIVE: CASE EVENT DATE: 20190215
